FAERS Safety Report 24034174 (Version 1)
Quarter: 2024Q3

REPORT INFORMATION
  Report Type: Spontaneous
  Country: CN (occurrence: CN)
  Receive Date: 20240701
  Receipt Date: 20240701
  Transmission Date: 20241017
  Serious: Yes (Other)
  Sender: Teyro Labs
  Company Number: CN-TEYRO-2024-TY-000219

PATIENT
  Age: 65 Year
  Sex: Male

DRUGS (3)
  1. CARBOPLATIN [Suspect]
     Active Substance: CARBOPLATIN
     Indication: Lung squamous cell carcinoma stage III
     Dosage: AUC, 5 ON DAY 1, EVERY 3 WEEKS FOR 2 CYCLES
     Route: 065
     Dates: start: 20220314
  2. TISLELIZUMAB [Suspect]
     Active Substance: TISLELIZUMAB
     Indication: Lung squamous cell carcinoma stage III
     Dosage: 200 MG ON DAY 1, EVERY 3 WEEKS FOR 2 CYCLES
     Route: 042
     Dates: start: 20220314
  3. PACLITAXEL [Suspect]
     Active Substance: PACLITAXEL
     Indication: Lung squamous cell carcinoma stage III
     Dosage: 260 MG/M2 ON DAY 1, EVERY 3 WEEKS FOR 2 CYCLES
     Route: 065
     Dates: start: 20220314

REACTIONS (2)
  - Neoplasm progression [Unknown]
  - Off label use [Unknown]

NARRATIVE: CASE EVENT DATE: 20230301
